FAERS Safety Report 24018299 (Version 1)
Quarter: 2024Q2

REPORT INFORMATION
  Report Type: Report from Study
  Country: AU (occurrence: AU)
  Receive Date: 20240627
  Receipt Date: 20240627
  Transmission Date: 20240716
  Serious: Yes (Other)
  Sender: FDA-Public Use
  Company Number: AU-JNJFOC-20240655027

PATIENT
  Age: 80 Year
  Sex: Female

DRUGS (1)
  1. BORTEZOMIB [Suspect]
     Active Substance: BORTEZOMIB
     Indication: Plasma cell myeloma
     Dosage: UNK
     Route: 065

REACTIONS (3)
  - Plasma cell myeloma refractory [Unknown]
  - Angina unstable [Unknown]
  - Myocardial ischaemia [Unknown]

NARRATIVE: CASE EVENT DATE: 20190827
